FAERS Safety Report 11566771 (Version 1)
Quarter: 2015Q3

REPORT INFORMATION
  Report Type: Spontaneous
  Country: DE (occurrence: DE)
  Receive Date: 20150929
  Receipt Date: 20150929
  Transmission Date: 20151125
  Serious: Yes (Hospitalization)
  Sender: FDA-Public Use
  Company Number: DE-SUN PHARMACEUTICAL INDUSTRIES LTD-12SUNBA19P

PATIENT
  Age: 47 Year
  Sex: Female

DRUGS (3)
  1. BACLOFEN. [Suspect]
     Active Substance: BACLOFEN
     Dosage: AT A DOSE OF 480MICROG/24 H
     Route: 037
  2. BACLOFEN. [Suspect]
     Active Substance: BACLOFEN
     Indication: PROGRESSIVE MULTIPLE SCLEROSIS
     Dosage: 60 MG BACLOFEN DELIVERED INTRATHECALLY IN CONTEXT OF OVERDOSE
     Route: 037
  3. BACLOFEN. [Suspect]
     Active Substance: BACLOFEN
     Dosage: ON DAY 7 OF HOSPITALIZATION, REFILLED WITH 48 MG
     Route: 037

REACTIONS (15)
  - Delirium [Recovered/Resolved]
  - Hallucination [Recovered/Resolved]
  - Aggression [Recovered/Resolved]
  - Toxicity to various agents [Recovered/Resolved]
  - Drug administration error [Recovered/Resolved]
  - Dizziness [Recovered/Resolved]
  - Loss of consciousness [Recovered/Resolved]
  - Apnoea [Recovered/Resolved]
  - Confusional state [Recovered/Resolved]
  - Automatism [Recovered/Resolved]
  - Tachycardia [Recovered/Resolved]
  - Accidental overdose [Recovered/Resolved]
  - Seizure [Recovered/Resolved]
  - Blood pressure increased [Recovered/Resolved]
  - Fatigue [Recovered/Resolved]
